FAERS Safety Report 17356005 (Version 1)
Quarter: 2020Q1

REPORT INFORMATION
  Report Type: Spontaneous
  Country: FR (occurrence: FR)
  Receive Date: 20200131
  Receipt Date: 20200131
  Transmission Date: 20200409
  Serious: Yes (Hospitalization)
  Sender: FDA-Public Use
  Company Number: FR-PFIZER INC-2020035921

PATIENT
  Age: 47 Year
  Sex: Female

DRUGS (7)
  1. VENLAFAXINE HCL [Suspect]
     Active Substance: VENLAFAXINE HYDROCHLORIDE
     Indication: DEPRESSION
     Dosage: 150 MG, ONCE A DAY
     Route: 048
     Dates: start: 201905, end: 20191229
  2. SULFARLEM [Suspect]
     Active Substance: ANETHOLTRITHION
     Indication: APTYALISM
     Dosage: 37.5 MG, ONCE A DAY
     Route: 048
     Dates: start: 20191126, end: 20191126
  3. LAMALINE (ACETAMINOPHEN\CAFFEINE\OPIUM) [Suspect]
     Active Substance: ACETAMINOPHEN\CAFFEINE\OPIUM
     Indication: NECK PAIN
     Dosage: 8 DF, ONCE A DAY
     Route: 048
     Dates: start: 201911, end: 20191226
  4. LYRICA [Suspect]
     Active Substance: PREGABALIN
     Indication: NECK PAIN
     Dosage: 2 DF (DOSAGE FORM), ONCE A DAY
     Route: 048
     Dates: start: 201909, end: 20191226
  5. LEXOMIL [Concomitant]
     Active Substance: BROMAZEPAM
     Dosage: UNK
  6. ESOMEPRAZOLE MAGNESIUM. [Suspect]
     Active Substance: ESOMEPRAZOLE MAGNESIUM
     Indication: GASTROINTESTINAL DISORDER PROPHYLAXIS
     Dosage: 40 MG, ONCE A DAY
     Route: 048
     Dates: start: 201909, end: 20191126
  7. PROPRANOLOL [Concomitant]
     Active Substance: PROPRANOLOL HYDROCHLORIDE
     Dosage: UNK

REACTIONS (3)
  - Hyperbilirubinaemia [Recovering/Resolving]
  - Cholestasis [Recovering/Resolving]
  - Cell death [Recovering/Resolving]

NARRATIVE: CASE EVENT DATE: 20191225
